FAERS Safety Report 12314872 (Version 2)
Quarter: 2016Q2

REPORT INFORMATION
  Report Type: Report from Study
  Country: DE (occurrence: DE)
  Receive Date: 20160428
  Receipt Date: 20160517
  Transmission Date: 20160815
  Serious: Yes (Hospitalization)
  Sender: FDA-Public Use
  Company Number: DE-PFIZER INC-2014102968

PATIENT
  Age: 69 Year
  Sex: Female
  Weight: 63 kg

DRUGS (5)
  1. ENBREL [Suspect]
     Active Substance: ETANERCEPT
     Dosage: 50 MG, WEEKLY
     Dates: start: 20121221, end: 20140310
  2. ENBREL [Suspect]
     Active Substance: ETANERCEPT
     Dosage: 50 MG, WEEKLY
     Dates: start: 201404
  3. IBUPROFEN. [Suspect]
     Active Substance: IBUPROFEN
     Indication: TOOTH EXTRACTION
     Dosage: UNK, 3X/DAY
     Route: 048
     Dates: start: 20140225, end: 20140306
  4. DEKRISTOL [Concomitant]
     Active Substance: CHOLECALCIFEROL
     Indication: OSTEOPOROSIS PROPHYLAXIS
     Dosage: UNK
     Route: 048
     Dates: start: 20120215
  5. PREDNISOLON [Concomitant]
     Active Substance: PREDNISOLONE
     Indication: POLYARTHRITIS
     Dosage: 2.5 MG, DAILY
     Route: 048
     Dates: start: 20120215, end: 201408

REACTIONS (1)
  - Acute kidney injury [Recovered/Resolved with Sequelae]

NARRATIVE: CASE EVENT DATE: 20140310
